FAERS Safety Report 15400130 (Version 1)
Quarter: 2018Q3

REPORT INFORMATION
  Report Type: Spontaneous
  Country: US (occurrence: US)
  Receive Date: 20180919
  Receipt Date: 20180919
  Transmission Date: 20181010
  Serious: No
  Sender: FDA-Public Use
  Company Number: US-BION-007155

PATIENT
  Sex: Male

DRUGS (1)
  1. ZYRTEC [Suspect]
     Active Substance: CETIRIZINE HYDROCHLORIDE
     Indication: HYPERSENSITIVITY
     Route: 048
     Dates: end: 20180422

REACTIONS (3)
  - Withdrawal syndrome [Not Recovered/Not Resolved]
  - Pruritus [Not Recovered/Not Resolved]
  - Incorrect drug administration duration [Not Recovered/Not Resolved]

NARRATIVE: CASE EVENT DATE: 20180423
